FAERS Safety Report 8315104-0 (Version None)
Quarter: 2012Q2

REPORT INFORMATION
  Report Type: 
  Country: None (occurrence: None)
  Receive Date: 20120426
  Receipt Date: 20120417
  Transmission Date: 20120825
  Serious: Yes (Disabling, Other)
  Sender: FDA-Public Use
  Company Number: US-ABBOTT-12P-163-0926477-00

PATIENT
  Sex: Male

DRUGS (9)
  1. CORTISOL [Concomitant]
     Indication: PRODUCT USED FOR UNKNOWN INDICATION
  2. EPIDURALS [Concomitant]
     Indication: PRODUCT USED FOR UNKNOWN INDICATION
  3. ALLOPURINOL [Concomitant]
     Indication: PRODUCT USED FOR UNKNOWN INDICATION
  4. LISINOPRIL [Concomitant]
     Indication: PRODUCT USED FOR UNKNOWN INDICATION
  5. CELEBREX [Concomitant]
     Indication: PRODUCT USED FOR UNKNOWN INDICATION
  6. ASPIRIN [Concomitant]
     Indication: PRODUCT USED FOR UNKNOWN INDICATION
  7. BLACK CHERRY SYRUP [Concomitant]
     Indication: PRODUCT USED FOR UNKNOWN INDICATION
  8. NIASPAN [Suspect]
     Indication: PRODUCT USED FOR UNKNOWN INDICATION
     Dates: start: 19980401
  9. HIP INJECTIONS [Concomitant]
     Indication: PRODUCT USED FOR UNKNOWN INDICATION

REACTIONS (8)
  - ARTHRITIS [None]
  - NEUROSURGERY [None]
  - INSOMNIA [None]
  - MOBILITY DECREASED [None]
  - GOUT [None]
  - BACK PAIN [None]
  - PAIN [None]
  - INTERVERTEBRAL DISC DEGENERATION [None]
